FAERS Safety Report 24153287 (Version 1)
Quarter: 2024Q3

REPORT INFORMATION
  Report Type: Spontaneous
  Country: FR (occurrence: FR)
  Receive Date: 20240730
  Receipt Date: 20240730
  Transmission Date: 20241016
  Serious: Yes (Other)
  Sender: OTSUKA
  Company Number: FR-OTSUKA-2024_020580

PATIENT
  Age: 22 Year
  Sex: Female

DRUGS (1)
  1. ABILIFY MAINTENA [Suspect]
     Active Substance: ARIPIPRAZOLE
     Indication: Bipolar disorder
     Dosage: 400 MG, EVERY 28 DAYS
     Route: 065

REACTIONS (3)
  - Hallucination [Unknown]
  - Therapeutic product effect decreased [Unknown]
  - Off label use [Unknown]
